FAERS Safety Report 8804911 (Version 2)
Quarter: 2012Q4

REPORT INFORMATION
  Report Type: 
  Country: US (occurrence: US)
  Receive Date: 20120924
  Receipt Date: 20121120
  Transmission Date: 20130627
  Serious: Yes (Other)
  Sender: FDA-Public Use
  Company Number: US-PFIZER INC-2012234142

PATIENT
  Age: 65 Year
  Sex: Female
  Weight: 72.56 kg

DRUGS (4)
  1. LYRICA [Suspect]
     Indication: ANXIETY
     Dosage: 100 mg, 3x/day
     Route: 048
  2. LYRICA [Suspect]
     Dosage: UNK
     Dates: start: 20120620
  3. VICODIN [Concomitant]
     Indication: BACK PAIN
     Dosage: UNK
     Dates: end: 201210
  4. VALIUM [Concomitant]
     Dosage: UNK

REACTIONS (3)
  - Lung neoplasm malignant [Recovered/Resolved]
  - Nerve injury [Recovered/Resolved]
  - Neuralgia [Recovered/Resolved]
